FAERS Safety Report 17835886 (Version 1)
Quarter: 2020Q2

REPORT INFORMATION
  Report Type: Spontaneous
  Country: GB (occurrence: GB)
  Receive Date: 20200528
  Receipt Date: 20200528
  Transmission Date: 20200714
  Serious: Yes (Other)
  Sender: FDA-Public Use
  Company Number: GB-NOVA LABORATORIES LIMITED-2084277

PATIENT
  Sex: Female

DRUGS (2)
  1. PURIXAN [Suspect]
     Active Substance: MERCAPTOPURINE
  2. OCTASA [Suspect]
     Active Substance: MESALAMINE

REACTIONS (2)
  - Abortion spontaneous [Unknown]
  - Exposure during pregnancy [None]
